FAERS Safety Report 8110430-2 (Version None)
Quarter: 2012Q1

REPORT INFORMATION
  Report Type: 
  Country: None (occurrence: None)
  Receive Date: 20120202
  Receipt Date: 20120127
  Transmission Date: 20120608
  Serious: Yes (Other)
  Sender: FDA-Public Use
  Company Number: US-ASTRAZENECA-2012SE06045

PATIENT
  Age: 30 Year
  Sex: Female

DRUGS (3)
  1. PREDNISONE TAB [Concomitant]
  2. BENADRYL [Concomitant]
  3. BRILINTA [Suspect]
     Indication: ACUTE CORONARY SYNDROME
     Route: 048

REACTIONS (4)
  - BURNING SENSATION [None]
  - HEAT RASH [None]
  - CORONARY ARTERY OCCLUSION [None]
  - PRURITUS [None]
